FAERS Safety Report 13727007 (Version 3)
Quarter: 2020Q3

REPORT INFORMATION
  Report Type: Spontaneous
  Country: DE (occurrence: DE)
  Receive Date: 20170707
  Receipt Date: 20200914
  Transmission Date: 20201102
  Serious: Yes (Other)
  Sender: FDA-Public Use
  Company Number: DE-AUROBINDO-AUR-APL-2017-36861

PATIENT
  Sex: Female
  Weight: 87 kg

DRUGS (12)
  1. LANTUS [Concomitant]
     Active Substance: INSULIN GLARGINE
     Indication: GESTATIONAL DIABETES
     Dosage: 34 INTERNATIONAL UNIT, ONCE A DAY (3 TRIMESTER)(30.3. ? 39. GESTATIONAL WEEK )
     Route: 058
     Dates: start: 20161206
  2. FOLIO FORTE [Concomitant]
     Active Substance: FOLIC ACID\VITAMINS
     Indication: PROPHYLAXIS OF NEURAL TUBE DEFECT
     Dosage: 0.8 MG, ONCE A DAY (1 TRIMESTER) (0. ? 39. GESTATIONAL WEEK)
     Route: 048
     Dates: start: 20160507, end: 20170204
  3. FOLIO FORTE [Concomitant]
     Active Substance: FOLIC ACID\VITAMINS
     Dosage: 0.8 MG, ONCE A DAY (1 TRIMESTER) (0. ? 39. GESTATIONAL WEEK)
     Route: 048
     Dates: start: 20170204
  4. HUMALOG MIX50/50 [Concomitant]
     Active Substance: INSULIN LISPRO
     Indication: GESTATIONAL DIABETES
     Dosage: 28 INTERNATIONAL UNIT, DAILY [IE/D (0?0?28)
     Route: 058
     Dates: start: 20161201
  5. HUMALOG [Concomitant]
     Active Substance: INSULIN LISPRO
     Indication: GESTATIONAL DIABETES
     Dosage: 24 INTERNATIONAL UNIT, ONCE A DAY (3 TRIMESTER) (28.4. ? 39. GESTATIONAL WEEK )
     Route: 058
     Dates: start: 20161123
  6. L?THYROX [Concomitant]
     Active Substance: LEVOTHYROXINE SODIUM
     Indication: HYPOTHYROIDISM
     Dosage: 75 MICROGRAM, ONCE A DAY (75 [?G/D (1?0?0) (3 TRIMESTER) (27.3 ?39. GESTATIONAL WEEK )
     Route: 048
  7. VENLAFAXINE [Suspect]
     Active Substance: VENLAFAXINE HYDROCHLORIDE
     Dosage: 75 MG, ONCE A DAY (1 TRIMESTER)(0. ? 39. GESTATIONAL WEEK)
     Route: 048
     Dates: start: 20170204
  8. OLANZAPINE. [Suspect]
     Active Substance: OLANZAPINE
     Indication: ANXIETY DISORDER
     Dosage: 5 MG, ONCE A DAY (1 TRIMESTER)(0?39. GESTATIONAL WEEK )
     Route: 048
     Dates: start: 20160507
  9. OLANZAPINE. [Suspect]
     Active Substance: OLANZAPINE
     Dosage: 5 MG, ONCE A DAY (1 TRIMESTER)(0?39. GESTATIONAL WEEK)
     Route: 048
     Dates: start: 20170204
  10. VENLAFAXINE [Suspect]
     Active Substance: VENLAFAXINE HYDROCHLORIDE
     Indication: DEPRESSION
     Dosage: 75 MILLIGRAM, ONCE A DAY (1 TRIMESTER)(0. ? 39. GESTATIONAL WEEK)
     Route: 048
     Dates: start: 20160507
  11. HUMALOG MIX50/50 [Concomitant]
     Active Substance: INSULIN LISPRO
     Dosage: 28 INTERNATIONAL UNIT, ONCE A DAY (3 TRIMESTER)
     Route: 058
     Dates: start: 20170204
  12. INFLUENZA VACCINE [Concomitant]
     Active Substance: INFLUENZA VIRUS VACCINE
     Indication: IMMUNISATION
     Dosage: UNK ((2 TRIMESTER) (23.?23. GESTATIONAL WEEK)
     Route: 030

REACTIONS (2)
  - Maternal exposure during pregnancy [Unknown]
  - Gestational diabetes [Recovered/Resolved]
